FAERS Safety Report 11145431 (Version 1)
Quarter: 2015Q2

REPORT INFORMATION
  Report Type: Report from Study
  Country: US (occurrence: US)
  Receive Date: 20150528
  Receipt Date: 20150528
  Transmission Date: 20150821
  Serious: Yes (Hospitalization)
  Sender: FDA-Public Use
  Company Number: US-ABBVIE-15K-163-1396339-00

PATIENT
  Age: 34 Year
  Sex: Female
  Weight: 77.18 kg

DRUGS (10)
  1. HUMIRA [Suspect]
     Active Substance: ADALIMUMAB
     Route: 065
     Dates: start: 20141217
  2. NEXIUM [Concomitant]
     Active Substance: ESOMEPRAZOLE MAGNESIUM
     Indication: DYSPEPSIA
  3. ACZONE [Concomitant]
     Active Substance: DAPSONE
     Indication: ACNE
  4. HUMIRA [Suspect]
     Active Substance: ADALIMUMAB
     Indication: ANKYLOSING SPONDYLITIS
     Route: 065
     Dates: start: 201402, end: 20140922
  5. RESTASIS [Concomitant]
     Active Substance: CYCLOSPORINE
     Indication: DRY EYE
  6. OVACE [Concomitant]
     Active Substance: SULFACETAMIDE SODIUM
     Indication: ACNE
  7. SPIRONOLACTONE. [Concomitant]
     Active Substance: SPIRONOLACTONE
     Indication: POLYCYSTIC OVARIES
  8. FLONASE [Concomitant]
     Active Substance: FLUTICASONE PROPIONATE
     Indication: HYPERSENSITIVITY
  9. TRAMADOL [Concomitant]
     Active Substance: TRAMADOL
     Indication: PAIN
  10. ATRALIN [Concomitant]
     Active Substance: TRETINOIN
     Indication: ACNE

REACTIONS (13)
  - Acute respiratory distress syndrome [Recovered/Resolved]
  - Gastrointestinal wall thickening [Recovered/Resolved]
  - Nausea [Recovered/Resolved]
  - Streptococcal infection [Recovered/Resolved]
  - Influenza [Recovered/Resolved]
  - Pulmonary fibrosis [Recovered/Resolved]
  - Immunodeficiency [Recovered/Resolved]
  - Influenza [Recovered/Resolved]
  - Septic shock [Recovered/Resolved]
  - Coma [Recovered/Resolved]
  - Lung infiltration [Recovered/Resolved]
  - Crohn^s disease [Recovered/Resolved]
  - Pneumonia [Recovered/Resolved]

NARRATIVE: CASE EVENT DATE: 2014
